FAERS Safety Report 17692385 (Version 1)
Quarter: 2020Q2

REPORT INFORMATION
  Report Type: Spontaneous
  Country: US (occurrence: US)
  Receive Date: 20200421
  Receipt Date: 20200421
  Transmission Date: 20200714
  Serious: Yes (Other)
  Sender: FDA-Public Use
  Company Number: None

PATIENT
  Age: 34 Year
  Sex: Female
  Weight: 59.4 kg

DRUGS (1)
  1. BUPRENORPHINE/NALOXONE FILM [Suspect]
     Active Substance: BUPRENORPHINE\NALOXONE
     Indication: DRUG DEPENDENCE
     Dates: start: 20200211, end: 20200414

REACTIONS (4)
  - Oral mucosal blistering [None]
  - Glossitis [None]
  - Tongue blistering [None]
  - Stomatitis [None]

NARRATIVE: CASE EVENT DATE: 20200414
